FAERS Safety Report 4675140-2 (Version None)
Quarter: 2005Q2

REPORT INFORMATION
  Report Type: 
  Country: None (occurrence: None)
  Receive Date: 20050526
  Receipt Date: 20050516
  Transmission Date: 20051028
  Serious: Yes (Hospitalization)
  Sender: FDA-Public Use
  Company Number: US-MERCK-0505USA01926

PATIENT
  Age: 48 Year
  Sex: Male
  Weight: 111 kg

DRUGS (3)
  1. VIOXX [Suspect]
     Indication: BURSITIS
     Route: 048
  2. ACTOS [Concomitant]
     Route: 065
  3. GLUCOVANCE [Concomitant]
     Route: 065

REACTIONS (9)
  - ASTHENIA [None]
  - BACK PAIN [None]
  - CARDIOMEGALY [None]
  - CHEST PAIN [None]
  - DERMAL CYST [None]
  - ELECTROCARDIOGRAM ABNORMAL [None]
  - LIPOMA [None]
  - MUSCLE SPASMS [None]
  - NASOPHARYNGITIS [None]
